FAERS Safety Report 7297111-2 (Version None)
Quarter: 2011Q1

REPORT INFORMATION
  Report Type: 
  Country: None (occurrence: None)
  Receive Date: 20110216
  Receipt Date: 20110212
  Transmission Date: 20110831
  Serious: No
  Sender: FDA-Public Use
  Company Number: US-PFIZER INC-2011031635

PATIENT
  Sex: Female
  Weight: 54.422 kg

DRUGS (2)
  1. VITAMINS NOS [Suspect]
     Dosage: UNK
  2. ADVIL ALLERGY SINUS [Suspect]
     Indication: BACK PAIN
     Dosage: UNK, 1X/DAY
     Route: 048
     Dates: end: 20110201

REACTIONS (1)
  - HEART RATE INCREASED [None]
